FAERS Safety Report 23558976 (Version 1)
Quarter: 2024Q1

REPORT INFORMATION
  Report Type: Spontaneous
  Country: CH (occurrence: CH)
  Receive Date: 20240223
  Receipt Date: 20240223
  Transmission Date: 20240410
  Serious: Yes (Death, Life-Threatening, Hospitalization, Other)
  Sender: FDA-Public Use
  Company Number: None

PATIENT
  Age: 76 Year
  Sex: Male

DRUGS (6)
  1. LIBTAYO [Suspect]
     Active Substance: CEMIPLIMAB-RWLC
     Indication: Salivary gland cancer
     Dosage: 350 MG
     Route: 042
     Dates: start: 20231220, end: 20231220
  2. DALACIN C [CLINDAMYCIN PHOSPHATE] [Concomitant]
     Indication: Product used for unknown indication
     Dosage: 300 MG, TID
     Dates: start: 20231208, end: 20231210
  3. DAFALGAN [Concomitant]
     Active Substance: ACETAMINOPHEN
     Indication: Pain
     Dosage: 1 G, PRN
  4. NIFEDIPIN MEPHA [Concomitant]
     Indication: Product used for unknown indication
     Dosage: 20MG QD
     Route: 048
  5. GLUCOPHAGE [Concomitant]
     Active Substance: METFORMIN HYDROCHLORIDE
     Indication: Product used for unknown indication
     Dosage: 500MG QD
     Route: 048
  6. ATENOLOL\CHLORTHALIDONE [Concomitant]
     Active Substance: ATENOLOL\CHLORTHALIDONE
     Indication: Product used for unknown indication
     Dosage: 50/12.5 MG

REACTIONS (1)
  - Immune-mediated myocarditis [Fatal]

NARRATIVE: CASE EVENT DATE: 20240111
